FAERS Safety Report 8430071-7 (Version None)
Quarter: 2012Q2

REPORT INFORMATION
  Report Type: 
  Country: None (occurrence: None)
  Receive Date: 20120612
  Receipt Date: 20120530
  Transmission Date: 20120825
  Serious: Yes (Hospitalization, Disabling)
  Sender: FDA-Public Use
  Company Number: US-MYLANLABS-2009S1000321

PATIENT
  Age: 30 Year
  Sex: Female

DRUGS (7)
  1. PARLODEL [Concomitant]
  2. VALIUM [Concomitant]
  3. MIRALAX /00754501/ [Concomitant]
  4. FENTANYL-100 [Suspect]
     Indication: PAIN
     Route: 062
     Dates: start: 20070108, end: 20070110
  5. MARIJUANA [Concomitant]
     Indication: PAIN
  6. CYMBALTA [Concomitant]
  7. FLOMAX [Concomitant]

REACTIONS (8)
  - PNEUMONIA ASPIRATION [None]
  - ACUTE RESPIRATORY FAILURE [None]
  - HYPOXIC-ISCHAEMIC ENCEPHALOPATHY [None]
  - CLOSTRIDIAL INFECTION [None]
  - TOXICITY TO VARIOUS AGENTS [None]
  - NERVE INJURY [None]
  - RHABDOMYOLYSIS [None]
  - CARDIOMYOPATHY [None]
